FAERS Safety Report 6024824-2 (Version None)
Quarter: 2008Q4

REPORT INFORMATION
  Report Type: 
  Country: None (occurrence: None)
  Receive Date: 20081230
  Receipt Date: 20081230
  Transmission Date: 20090506
  Serious: Yes (Hospitalization)
  Sender: FDA-Public Use
  Company Number: None

PATIENT
  Age: 66 Year
  Sex: Female
  Weight: 69.4003 kg

DRUGS (2)
  1. EMEND [Suspect]
     Indication: CHEMOTHERAPY
     Dates: end: 20081215
  2. EMEND [Suspect]
     Indication: PREMEDICATION
     Dates: end: 20081215

REACTIONS (3)
  - ANGIOEDEMA [None]
  - PRURITUS [None]
  - URTICARIA [None]
